FAERS Safety Report 4959721-4 (Version None)
Quarter: 2006Q1

REPORT INFORMATION
  Report Type: 
  Country: None (occurrence: None)
  Receive Date: 20060327
  Receipt Date: 20060316
  Transmission Date: 20060701
  Serious: Yes (Other)
  Sender: FDA-Public Use
  Company Number: 2006BH005632

PATIENT

DRUGS (2)
  1. DOBUTAMINE HCL [Suspect]
     Indication: CORONARY ARTERY DISEASE
     Dosage: SEE IMAGE
  2. ATROPINE [Suspect]
     Indication: CORONARY ARTERY DISEASE
     Dosage: 0.25 MG; / MIN

REACTIONS (2)
  - CARDIAC PROCEDURE COMPLICATION [None]
  - VENTRICULAR TACHYCARDIA [None]
